FAERS Safety Report 14054203 (Version 1)
Quarter: 2017Q4

REPORT INFORMATION
  Report Type: Spontaneous
  Country: US (occurrence: US)
  Receive Date: 20171006
  Receipt Date: 20171006
  Transmission Date: 20180321
  Serious: No
  Sender: FDA-Public Use
  Company Number: US-JNJFOC-20170803394

PATIENT
  Age: 60 Year
  Sex: Male
  Weight: 90.72 kg

DRUGS (2)
  1. MENS ROGAINE EXTRA STRENGTH [Suspect]
     Active Substance: MINOXIDIL
     Route: 061
  2. MENS ROGAINE EXTRA STRENGTH [Suspect]
     Active Substance: MINOXIDIL
     Indication: ALOPECIA
     Dosage: MAYBE MORE THAN 1/2 CAP FULL RUB IT INTO THE CROW, THEN A QUARTER SIZE TO THE FRONT OF HEAD
     Route: 061
     Dates: start: 2017, end: 20170802

REACTIONS (5)
  - Overdose [Unknown]
  - Headache [Recovered/Resolved]
  - Dysgeusia [Not Recovered/Not Resolved]
  - Dizziness [Recovered/Resolved]
  - Drug administered at inappropriate site [Not Recovered/Not Resolved]

NARRATIVE: CASE EVENT DATE: 2017
